FAERS Safety Report 5707535-X (Version None)
Quarter: 2008Q2

REPORT INFORMATION
  Report Type: 
  Country: None (occurrence: None)
  Receive Date: 20080416
  Receipt Date: 20080408
  Transmission Date: 20081010
  Serious: Yes (Hospitalization, Other)
  Sender: FDA-Public Use
  Company Number: BR-PFIZER INC-2008007541

PATIENT
  Sex: Male

DRUGS (4)
  1. SILDENAFIL (PAH) [Suspect]
     Indication: PULMONARY HYPERTENSION
     Route: 048
  2. SERETIDE [Concomitant]
  3. SPIRIVA [Concomitant]
  4. SIMVASTATIN [Concomitant]

REACTIONS (2)
  - PULMONARY HYPERTENSION [None]
  - SWELLING [None]
